FAERS Safety Report 7363420-1 (Version None)
Quarter: 2011Q1

REPORT INFORMATION
  Report Type: 
  Country: None (occurrence: None)
  Receive Date: 20110321
  Receipt Date: 20110308
  Transmission Date: 20110831
  Serious: Yes (Hospitalization)
  Sender: FDA-Public Use
  Company Number: US-JNJFOC-20091102248

PATIENT
  Sex: Female
  Weight: 26.5 kg

DRUGS (5)
  1. REMICADE [Suspect]
     Indication: INFLAMMATORY BOWEL DISEASE
     Route: 042
  2. 5-AMINOSALICYLIC ACID [Concomitant]
  3. ANTIBIOTICS [Concomitant]
  4. REMICADE [Suspect]
     Route: 042
  5. ANTIBIOTICS [Concomitant]

REACTIONS (1)
  - COLITIS [None]
